FAERS Safety Report 13997951 (Version 1)
Quarter: 2017Q3

REPORT INFORMATION
  Report Type: Spontaneous
  Country: AU (occurrence: AU)
  Receive Date: 20170921
  Receipt Date: 20170921
  Transmission Date: 20171128
  Serious: Yes (Hospitalization)
  Sender: FDA-Public Use
  Company Number: AU-MYLANLABS-2017M1058745

PATIENT
  Age: 22 Year
  Sex: Female

DRUGS (5)
  1. CARBIMAZOLE [Suspect]
     Active Substance: CARBIMAZOLE
     Route: 065
  2. PAMIDRONATE [Suspect]
     Active Substance: PAMIDRONATE DISODIUM
     Indication: HYPERCALCAEMIA
     Dosage: 60 MG OVER 4 HOURS
     Route: 042
  3. CARBIMAZOLE [Suspect]
     Active Substance: CARBIMAZOLE
     Indication: BASEDOW^S DISEASE
     Dosage: STARTED WITH 10MG FOURTH HOURLY AND THEN REDUCED TO 10MG THREE TIMES A DAY
     Route: 065
  4. METOPROLOL. [Concomitant]
     Active Substance: METOPROLOL
     Indication: PRODUCT USED FOR UNKNOWN INDICATION
     Route: 065
  5. CALCITRIOL. [Concomitant]
     Active Substance: CALCITRIOL
     Indication: HYPOCALCAEMIA
     Route: 065

REACTIONS (3)
  - Hypocalcaemia [Recovering/Resolving]
  - Agranulocytosis [Recovering/Resolving]
  - Acute phase reaction [Recovering/Resolving]
